FAERS Safety Report 8543964-7 (Version None)
Quarter: 2012Q3

REPORT INFORMATION
  Report Type: 
  Country: None (occurrence: None)
  Receive Date: 20120717
  Receipt Date: 20120705
  Transmission Date: 20120928
  Serious: Yes (Hospitalization)
  Sender: FDA-Public Use
  Company Number: JPI-P-022509

PATIENT
  Age: 49 Year
  Sex: Male

DRUGS (2)
  1. XYREM [Suspect]
     Indication: NARCOLEPSY
     Dosage: 4.5;6 GM (2.L25 GM, 2 IN 1 D), ORAL
     Route: 048
     Dates: start: 20110603
  2. XYREM [Suspect]
     Indication: NARCOLEPSY
     Dosage: 4.5;6 GM (2.L25 GM, 2 IN 1 D), ORAL
     Route: 048
     Dates: start: 20110610

REACTIONS (2)
  - CEREBROVASCULAR ACCIDENT [None]
  - CARDIAC DISORDER [None]
